FAERS Safety Report 7120754-3 (Version None)
Quarter: 2010Q4

REPORT INFORMATION
  Report Type: 
  Country: None (occurrence: None)
  Receive Date: 20101118
  Receipt Date: 20101118
  Transmission Date: 20110411
  Serious: No
  Sender: FDA-Public Use
  Company Number: None

PATIENT
  Sex: Male

DRUGS (9)
  1. FLUTICASONE PROPIONATE [Suspect]
     Dosage: USE 1 SPRAY IN NOSTRIL(S) DAILY
     Route: 045
     Dates: start: 20100612
  2. LORATADINE [Concomitant]
  3. LISINOPRIL [Concomitant]
  4. CIMETIDINE [Concomitant]
  5. SYNTHROID [Concomitant]
  6. COMBIVENT [Concomitant]
  7. EPIPEN [Concomitant]
  8. LEVEMIR [Concomitant]
  9. NOVOLOG [Concomitant]

REACTIONS (1)
  - PRODUCT QUALITY ISSUE [None]
